FAERS Safety Report 14090575 (Version 4)
Quarter: 2018Q4

REPORT INFORMATION
  Report Type: Report from Study
  Country: GB (occurrence: GB)
  Receive Date: 20171015
  Receipt Date: 20181130
  Transmission Date: 20190204
  Serious: Yes (Other)
  Sender: FDA-Public Use
  Company Number: GB-BRISTOL-MYERS SQUIBB COMPANY-BMS-2017-080264

PATIENT
  Sex: Female

DRUGS (1)
  1. ABATACEPT [Suspect]
     Active Substance: ABATACEPT
     Indication: RHEUMATOID ARTHRITIS
     Dosage: 125 MG, QWK
     Route: 058
     Dates: start: 20170911

REACTIONS (8)
  - Grip strength decreased [Unknown]
  - Nodule [Unknown]
  - Malaise [Unknown]
  - Oropharyngeal pain [Unknown]
  - Vocal cord disorder [Unknown]
  - Arthralgia [Unknown]
  - Abdominal pain upper [Unknown]
  - Diarrhoea [Unknown]
